FAERS Safety Report 15198421 (Version 2)
Quarter: 2018Q4

REPORT INFORMATION
  Report Type: Report from Study
  Country: US (occurrence: US)
  Receive Date: 20180725
  Receipt Date: 20181017
  Transmission Date: 20190204
  Serious: No
  Sender: FDA-Public Use
  Company Number: US-AMGEN-USASL2018082160

PATIENT
  Sex: Male

DRUGS (1)
  1. REPATHA [Suspect]
     Active Substance: EVOLOCUMAB
     Indication: HYPERCHOLESTEROLAEMIA
     Dosage: 140 MG, Q2WK
     Route: 065
     Dates: start: 201803

REACTIONS (2)
  - Seborrhoea [Recovered/Resolved]
  - Back pain [Unknown]

NARRATIVE: CASE EVENT DATE: 2018
